FAERS Safety Report 5631961-0 (Version None)
Quarter: 2008Q1

REPORT INFORMATION
  Report Type: 
  Country: None (occurrence: None)
  Receive Date: 20080220
  Receipt Date: 20080211
  Transmission Date: 20080703
  Serious: Yes (Hospitalization, Other)
  Sender: FDA-Public Use
  Company Number: US-ELI_LILLY_AND_COMPANY-US200711002518

PATIENT
  Sex: Male
  Weight: 123.81 kg

DRUGS (11)
  1. ALIMTA [Suspect]
     Indication: ADENOCARCINOMA PANCREAS
     Dosage: 300 MG/M2, OTHER
     Route: 065
     Dates: start: 20071105
  2. LEVAQUIN [Concomitant]
     Dosage: 500 MG, DAILY (1/D)
     Route: 048
     Dates: end: 20071101
  3. COUMADIN [Concomitant]
     Dosage: 5 MG, EACH EVENING
     Route: 048
  4. COUMADIN [Concomitant]
     Dosage: 10 MG, EACH EVENING
     Route: 048
     Dates: start: 20071101
  5. MIRALAX [Concomitant]
     Indication: CONSTIPATION
     Dosage: 17 G, AS NEEDED
     Route: 048
  6. LOVENOX [Concomitant]
     Dosage: OTHER,EVERY 12 HOURS
     Route: 058
     Dates: end: 20071101
  7. LOPRESSOR [Concomitant]
     Dosage: 12.5 MG, 2/D
     Route: 048
  8. LOPRESSOR [Concomitant]
     Dosage: 25 MG, 3/D,EVERY 12 HOURS
     Route: 048
     Dates: start: 20071101
  9. SENOKOT [Concomitant]
     Indication: CONSTIPATION
     Dosage: 2 UNK, DAILY (1/D)
     Route: 048
     Dates: end: 20071101
  10. ASPIRIN [Concomitant]
     Dosage: 81 MG, DAILY (1/D)
     Route: 065
  11. DIGOXIN [Concomitant]
     Dosage: 125 UG, DAILY (1/D)
     Dates: start: 20071101

REACTIONS (5)
  - BLOOD ALBUMIN ABNORMAL [None]
  - BLOOD BILIRUBIN ABNORMAL [None]
  - BLOOD GLUCOSE ABNORMAL [None]
  - PULMONARY ARTERY THROMBOSIS [None]
  - SUPRAVENTRICULAR TACHYCARDIA [None]
